FAERS Safety Report 9321394 (Version 1)
Quarter: 2013Q2

REPORT INFORMATION
  Report Type: Spontaneous
  Country: DE (occurrence: None)
  Receive Date: 20130528
  Receipt Date: 20130528
  Transmission Date: 20140414
  Serious: Yes (Death)
  Sender: FDA-Public Use
  Company Number: 2013P1006046

PATIENT
  Age: 52 Year
  Sex: Female

DRUGS (9)
  1. AMLODIPINE [Suspect]
  2. DIAZEPAM [Suspect]
  3. METOPROLOL [Suspect]
  4. DOXEPIN [Suspect]
  5. PROTHIPENDYL [Suspect]
  6. OLANZAPINE [Suspect]
  7. TILIDINE [Suspect]
  8. IBUPROFEN [Suspect]
  9. OTHER UNNAMED MEDICATIONS [Suspect]

REACTIONS (6)
  - Pain [None]
  - Sleep disorder [None]
  - Drooling [None]
  - Somnolence [None]
  - Gait disturbance [None]
  - Toxicity to various agents [None]
